FAERS Safety Report 13355940 (Version 1)
Quarter: 2017Q1

REPORT INFORMATION
  Report Type: Spontaneous
  Country: US (occurrence: US)
  Receive Date: 20170321
  Receipt Date: 20170321
  Transmission Date: 20170429
  Serious: Yes (Hospitalization, Other)
  Sender: FDA-Public Use
  Company Number: US-VALIDUS PHARMACEUTICALS LLC-US-2017VAL000346

PATIENT
  Sex: Female

DRUGS (25)
  1. NORCO [Suspect]
     Active Substance: ACETAMINOPHEN\HYDROCODONE BITARTRATE
     Indication: PRODUCT USED FOR UNKNOWN INDICATION
     Dosage: UNK, PRN
  2. NORVASC [Suspect]
     Active Substance: AMLODIPINE BESYLATE
     Indication: HYPERTENSION
     Dosage: 2.5 DF, QD
  3. RAPAMUNE [Suspect]
     Active Substance: SIROLIMUS
     Indication: RENAL TRANSPLANT
     Dosage: 1 MG, QD
     Dates: start: 1988
  4. STRESS EASE ADRENAL SUPPORT [Suspect]
     Active Substance: HERBALS
     Indication: VITAMIN SUPPLEMENTATION
     Dosage: 2-3 PER DAY WITH MEALS, QD
     Dates: start: 2015
  5. LIPITOR [Suspect]
     Active Substance: ATORVASTATIN CALCIUM
     Indication: BLOOD CHOLESTEROL
     Dosage: 20 MG, QID
  6. PREDNISONE. [Suspect]
     Active Substance: PREDNISONE
     Indication: PRODUCT USED FOR UNKNOWN INDICATION
     Dosage: UNK
  7. FUROSEMIDE. [Suspect]
     Active Substance: FUROSEMIDE
     Indication: PRODUCT USED FOR UNKNOWN INDICATION
     Dosage: UNK
  8. NIACIN. [Suspect]
     Active Substance: NIACIN
     Indication: PRODUCT USED FOR UNKNOWN INDICATION
     Dosage: UNK
  9. PLAVIX [Suspect]
     Active Substance: CLOPIDOGREL BISULFATE
     Indication: PROPHYLAXIS
     Dosage: 75 MG, QID
  10. CYMBALTA [Suspect]
     Active Substance: DULOXETINE HYDROCHLORIDE
     Indication: DEPRESSION
     Dosage: UNK
  11. NOVOLOG [Suspect]
     Active Substance: INSULIN ASPART
     Indication: PRODUCT USED FOR UNKNOWN INDICATION
     Dosage: UNK, PRN
  12. SYNTHROID [Suspect]
     Active Substance: LEVOTHYROXINE SODIUM
     Indication: PRODUCT USED FOR UNKNOWN INDICATION
     Dosage: UNK
     Dates: start: 2015
  13. L-METHYLFOLATE [Suspect]
     Active Substance: LEVOMEFOLIC ACID
     Indication: PRODUCT USED FOR UNKNOWN INDICATION
     Dosage: UNK
  14. NEURONTIN [Suspect]
     Active Substance: GABAPENTIN
     Indication: PRODUCT USED FOR UNKNOWN INDICATION
     Dosage: UNK
  15. BABY ASPIRIN [Suspect]
     Active Substance: ASPIRIN
     Indication: PRODUCT USED FOR UNKNOWN INDICATION
     Dosage: UNK
  16. FISH OIL [Suspect]
     Active Substance: FISH OIL
     Indication: PRODUCT USED FOR UNKNOWN INDICATION
     Dosage: UNK
  17. MULTIVITAMIN [Suspect]
     Active Substance: VITAMINS
     Indication: PRODUCT USED FOR UNKNOWN INDICATION
     Dosage: UNK
  18. VALTREX [Suspect]
     Active Substance: VALACYCLOVIR HYDROCHLORIDE
     Indication: PRODUCT USED FOR UNKNOWN INDICATION
     Dosage: UNK
  19. CYMBALTA [Suspect]
     Active Substance: DULOXETINE HYDROCHLORIDE
     Indication: FIBROMYALGIA
  20. KLONOPIN [Suspect]
     Active Substance: CLONAZEPAM
     Indication: ANXIETY
     Dosage: UNK
  21. LANTUS [Suspect]
     Active Substance: INSULIN GLARGINE
     Indication: PRODUCT USED FOR UNKNOWN INDICATION
     Dosage: UNK (SOLAR STAR PEN)
  22. PRILOSEC [Suspect]
     Active Substance: OMEPRAZOLE MAGNESIUM
     Indication: PRODUCT USED FOR UNKNOWN INDICATION
     Dosage: UNK
  23. WELLBUTRIN [Suspect]
     Active Substance: BUPROPION HYDROCHLORIDE
     Indication: DEPRESSION
     Dosage: 300 MG, QID
  24. TOPROL XL [Suspect]
     Active Substance: METOPROLOL SUCCINATE
     Indication: PRODUCT USED FOR UNKNOWN INDICATION
     Dosage: UNK
  25. PROGRAFT [Suspect]
     Active Substance: TACROLIMUS
     Indication: PRODUCT USED FOR UNKNOWN INDICATION
     Dosage: UNK
     Dates: start: 1988

REACTIONS (14)
  - Insomnia [Unknown]
  - Headache [Unknown]
  - Cardiac disorder [Recovered/Resolved]
  - Osteomyelitis [Recovered/Resolved]
  - Dehydration [Recovered/Resolved]
  - Muscular weakness [Unknown]
  - Myocardial infarction [Recovered/Resolved]
  - Malnutrition [Recovered/Resolved]
  - Depression [Unknown]
  - Lupus nephritis [Unknown]
  - Cellulitis [Recovered/Resolved]
  - Systemic lupus erythematosus [Unknown]
  - Diabetes mellitus [Not Recovered/Not Resolved]
  - Fatigue [Unknown]

NARRATIVE: CASE EVENT DATE: 1980
